FAERS Safety Report 4629618-8 (Version None)
Quarter: 2005Q1

REPORT INFORMATION
  Report Type: 
  Country: None (occurrence: None)
  Receive Date: 20050331
  Receipt Date: 20030227
  Transmission Date: 20050727
  Serious: Yes (Other)
  Sender: FDA-Public Use
  Company Number: 2250051-2003-035

PATIENT

DRUGS (2)
  1. RHOGAM [Suspect]
     Dosage: IM (300 UG)
     Route: 030
  2. RHOGAM [Suspect]
     Indication: POSTPARTUM DISORDER
     Dosage: IM (300 UG)
     Route: 030

REACTIONS (3)
  - AUTISM [None]
  - DRUG EXPOSURE DURING PREGNANCY [None]
  - PHARMACEUTICAL PRODUCT COMPLAINT [None]
